FAERS Safety Report 4783575-2 (Version None)
Quarter: 2005Q3

REPORT INFORMATION
  Report Type: 
  Country: None (occurrence: None)
  Receive Date: 20050914
  Receipt Date: 20040810
  Transmission Date: 20060218
  Serious: Yes (Hospitalization)
  Sender: FDA-Public Use
  Company Number: 163-20785-04080205

PATIENT
  Age: 47 Year
  Sex: Male
  Weight: 130 kg

DRUGS (2)
  1. THALOMID [Suspect]
     Indication: RENAL CELL CARCINOMA STAGE UNSPECIFIED
     Dosage: 200 TO 1000MG, DAILY, ORAL
     Route: 048
     Dates: start: 20020201
  2. INTERFERON ALFA-2B (INTERFERON ALFA-2B) (UNKNOWN) [Suspect]
     Indication: RENAL CELL CARCINOMA STAGE UNSPECIFIED
     Dosage: 1 MILLION UNITS, BID, SUBCUTANEOUS
     Route: 058
     Dates: start: 20020201

REACTIONS (4)
  - ESCHERICHIA URINARY TRACT INFECTION [None]
  - HAEMATURIA [None]
  - PYREXIA [None]
  - URINARY RETENTION [None]
